FAERS Safety Report 7986676-0 (Version None)
Quarter: 2011Q4

REPORT INFORMATION
  Report Type: 
  Country: None (occurrence: None)
  Receive Date: 20111216
  Receipt Date: 20110808
  Transmission Date: 20120403
  Serious: No
  Sender: FDA-Public Use
  Company Number: US-BRISTOL-MYERS SQUIBB COMPANY-15954035

PATIENT
  Age: 50 Year
  Sex: Female

DRUGS (2)
  1. CYMBALTA [Suspect]
  2. ABILIFY [Suspect]
     Dosage: ABILIFY DOSE TO 5MG

REACTIONS (2)
  - LIPIDS INCREASED [None]
  - WEIGHT INCREASED [None]
